FAERS Safety Report 7213547-X (Version None)
Quarter: 2011Q1

REPORT INFORMATION
  Report Type: 
  Country: None (occurrence: None)
  Receive Date: 20110106
  Receipt Date: 20110103
  Transmission Date: 20110831
  Serious: Yes (Other)
  Sender: FDA-Public Use
  Company Number: PL-PFIZER INC-2010143581

PATIENT
  Age: 89 Year
  Sex: Female

DRUGS (1)
  1. XALATAN [Suspect]
     Dosage: UNK
     Route: 047
     Dates: start: 20060109

REACTIONS (2)
  - DEPOSIT EYE [None]
  - SOCIAL AVOIDANT BEHAVIOUR [None]
